FAERS Safety Report 9381756 (Version 1)
Quarter: 2013Q3

REPORT INFORMATION
  Report Type: Spontaneous
  Country: US (occurrence: US)
  Receive Date: 20130703
  Receipt Date: 20130703
  Transmission Date: 20140515
  Serious: Yes (Other)
  Sender: FDA-Public Use
  Company Number: US-FRI-1000046374

PATIENT
  Age: 61 Year
  Sex: Female
  Weight: 133.3 kg

DRUGS (10)
  1. LINZESS [Suspect]
     Indication: CONSTIPATION
     Dosage: 290 MCG
     Route: 048
     Dates: start: 201306
  2. NEXIUM [Concomitant]
  3. THEOPHYLLINE [Concomitant]
     Indication: CHRONIC OBSTRUCTIVE PULMONARY DISEASE
  4. VITAMIN B 12 [Concomitant]
  5. ASPIRIN [Concomitant]
  6. CARAFATE [Concomitant]
  7. NEURONTIN [Concomitant]
  8. JANUVIA [Concomitant]
     Indication: DIABETES MELLITUS
  9. MAGNESIUM [Concomitant]
  10. LASIX [Concomitant]
     Indication: CARDIAC FAILURE CONGESTIVE

REACTIONS (4)
  - Weight increased [Not Recovered/Not Resolved]
  - Abdominal distension [Not Recovered/Not Resolved]
  - Flatulence [Not Recovered/Not Resolved]
  - Dyspnoea [Not Recovered/Not Resolved]
